FAERS Safety Report 6361602-9 (Version None)
Quarter: 2009Q3

REPORT INFORMATION
  Report Type: 
  Country: None (occurrence: None)
  Receive Date: 20090918
  Receipt Date: 20090916
  Transmission Date: 20100115
  Serious: Yes (Death, Life-Threatening, Hospitalization, Other)
  Sender: FDA-Public Use
  Company Number: PHHO2007US10854

PATIENT
  Sex: Male
  Weight: 106 kg

DRUGS (52)
  1. STI571/CGP57148B T35717+CAPS [Suspect]
     Indication: ACUTE MYELOID LEUKAEMIA
     Dosage: 300 MG, QD
     Route: 048
     Dates: start: 20070608
  2. DAUNORUBICIN HCL [Suspect]
     Indication: ACUTE MYELOID LEUKAEMIA
     Dosage: UNK
     Dates: start: 20070608, end: 20070610
  3. CYTARABINE [Suspect]
     Indication: ACUTE MYELOID LEUKAEMIA
     Dosage: UNK
     Dates: start: 20070608, end: 20070614
  4. CORDARONE [Concomitant]
  5. CORTROSYN [Concomitant]
  6. TOBRAMYCIN [Concomitant]
  7. TUBERSOL [Concomitant]
  8. VFEND [Concomitant]
  9. BENADRYL [Concomitant]
  10. SOLU-CORTEF [Concomitant]
  11. LASIX [Concomitant]
  12. K-DUR [Concomitant]
  13. TYLENOL (CAPLET) [Concomitant]
  14. SODIUM CHLORIDE [Concomitant]
  15. ACETAMINOPHEN [Concomitant]
  16. POTASSIUM CHLORIDE [Concomitant]
  17. MORPHINE [Concomitant]
  18. ATIVAN [Concomitant]
  19. DEMEROL [Concomitant]
  20. ZOFRAN [Concomitant]
  21. CERUBIDINE [Concomitant]
  22. GLUCOSE [Concomitant]
  23. GLUCAGEN [Concomitant]
  24. TENORMIN [Concomitant]
  25. MICRONASE [Concomitant]
  26. GLUCOPHAGE [Concomitant]
  27. PRED FORTE [Concomitant]
  28. ECONOPRED [Concomitant]
  29. NEXIUM [Concomitant]
  30. ZOVIRAX [Concomitant]
  31. ZYLOPRIM [Concomitant]
  32. NORVASC [Concomitant]
  33. FORTAZ [Concomitant]
  34. ZOSYN [Concomitant]
  35. COMPAZINE [Concomitant]
  36. FLAGYL [Concomitant]
  37. GENTAMICIN [Concomitant]
  38. VANCOMYCIN [Concomitant]
  39. HYDROCORTISONE [Concomitant]
  40. MYCOSTATIN [Concomitant]
  41. PEPCID [Concomitant]
  42. PRIMAXIN [Concomitant]
  43. CUBICIN [Concomitant]
  44. ABELCET [Concomitant]
  45. APRESOLINE [Concomitant]
  46. ROBITUSSIN [Concomitant]
  47. PROVENTIL-HFA [Concomitant]
  48. ADVAIR HFA [Concomitant]
  49. CORTEF [Concomitant]
  50. SUBLIMAZE PRESERVATIVE FREE [Concomitant]
  51. NEUPOGEN [Concomitant]
  52. TRACRIUM [Concomitant]

REACTIONS (12)
  - ATELECTASIS [None]
  - BLOOD CREATININE INCREASED [None]
  - CARDIAC FAILURE CONGESTIVE [None]
  - FLUID OVERLOAD [None]
  - FUNGAL INFECTION [None]
  - HYDRONEPHROSIS [None]
  - ILEUS [None]
  - PLEURAL EFFUSION [None]
  - PNEUMONIA [None]
  - PULMONARY OEDEMA [None]
  - RESPIRATORY DISTRESS [None]
  - SEPSIS [None]
